FAERS Safety Report 16060850 (Version 1)
Quarter: 2019Q1

REPORT INFORMATION
  Report Type: Spontaneous
  Country: FR (occurrence: FR)
  Receive Date: 20190312
  Receipt Date: 20190312
  Transmission Date: 20190418
  Serious: Yes (Life-Threatening, Other)
  Sender: FDA-Public Use
  Company Number: FR-ROCHE-2261734

PATIENT
  Age: 48 Year
  Sex: Female

DRUGS (22)
  1. DIGOXIN. [Suspect]
     Active Substance: DIGOXIN
     Indication: SYSTOLIC DYSFUNCTION
  2. PREDNISONE. [Suspect]
     Active Substance: PREDNISONE
     Indication: CONGESTIVE CARDIOMYOPATHY
  3. RITUXIMAB. [Suspect]
     Active Substance: RITUXIMAB
     Indication: SYSTEMIC SCLERODERMA
     Route: 065
     Dates: start: 201502
  4. DIGOXIN. [Suspect]
     Active Substance: DIGOXIN
     Indication: SYSTEMIC SCLERODERMA
  5. PREDNISONE. [Suspect]
     Active Substance: PREDNISONE
     Indication: PERICARDITIS
  6. PREDNISONE. [Suspect]
     Active Substance: PREDNISONE
     Indication: SYSTOLIC DYSFUNCTION
  7. METHOTREXATE. [Suspect]
     Active Substance: METHOTREXATE
     Indication: SYSTEMIC SCLERODERMA
     Route: 065
  8. DIGOXIN. [Suspect]
     Active Substance: DIGOXIN
     Indication: PERICARDITIS
  9. DIGOXIN. [Suspect]
     Active Substance: DIGOXIN
     Indication: MYOCARDIAL FIBROSIS
  10. COLCHICINE. [Suspect]
     Active Substance: COLCHICINE
     Indication: PERICARDIAL EFFUSION
     Route: 065
  11. PREDNISONE. [Suspect]
     Active Substance: PREDNISONE
     Indication: ATRIAL FIBRILLATION
     Route: 065
  12. PREDNISONE. [Suspect]
     Active Substance: PREDNISONE
     Indication: PERICARDIAL EFFUSION
  13. DIGOXIN. [Suspect]
     Active Substance: DIGOXIN
     Indication: CONGESTIVE CARDIOMYOPATHY
  14. DIGOXIN. [Suspect]
     Active Substance: DIGOXIN
     Indication: PERICARDIAL EFFUSION
  15. DIGOXIN. [Suspect]
     Active Substance: DIGOXIN
     Indication: ATRIAL FIBRILLATION
     Route: 065
  16. COLCHICINE. [Suspect]
     Active Substance: COLCHICINE
     Indication: SYSTEMIC SCLERODERMA
     Route: 065
     Dates: start: 201408
  17. PREDNISONE. [Suspect]
     Active Substance: PREDNISONE
     Indication: MYOCARDIAL FIBROSIS
     Dosage: LATER ADMINISTERED AS 1 MG/KG/DAY
     Route: 065
  18. PREDNISONE. [Suspect]
     Active Substance: PREDNISONE
     Indication: SYSTEMIC SCLERODERMA
  19. DIGOXIN. [Suspect]
     Active Substance: DIGOXIN
     Indication: CARDIAC TAMPONADE
  20. DIGOXIN. [Suspect]
     Active Substance: DIGOXIN
     Indication: ARRHYTHMIA
  21. PREDNISONE. [Suspect]
     Active Substance: PREDNISONE
     Indication: CARDIAC TAMPONADE
     Dosage: LATER ADMINISTERED AS 5 MG/DAY
     Route: 065
     Dates: start: 201408
  22. PREDNISONE. [Suspect]
     Active Substance: PREDNISONE
     Indication: ARRHYTHMIA

REACTIONS (6)
  - Systolic dysfunction [Recovered/Resolved]
  - Drug ineffective [Unknown]
  - Cardiac tamponade [Unknown]
  - Cardiac dysfunction [Recovering/Resolving]
  - Atrial fibrillation [Unknown]
  - Staphylococcal sepsis [Unknown]

NARRATIVE: CASE EVENT DATE: 201412
